FAERS Safety Report 4293777-X (Version None)
Quarter: 2004Q1

REPORT INFORMATION
  Report Type: 
  Country: None (occurrence: None)
  Receive Date: 20040211
  Receipt Date: 20040205
  Transmission Date: 20041129
  Serious: Yes (Other)
  Sender: FDA-Public Use
  Company Number: US-JNJFOC-20040201330

PATIENT
  Age: 8 Year
  Sex: Female
  Weight: 25 kg

DRUGS (5)
  1. CISAPRIDE (CISAPRIDE) SUSPENSION [Suspect]
     Indication: GASTROOESOPHAGEAL REFLUX DISEASE
     Dosage: SEE IMAGE
     Route: 048
     Dates: start: 20030109, end: 20031102
  2. CISAPRIDE (CISAPRIDE) SUSPENSION [Suspect]
     Indication: GASTROOESOPHAGEAL REFLUX DISEASE
     Dosage: SEE IMAGE
     Route: 048
     Dates: start: 20031103, end: 20031107
  3. CISAPRIDE (CISAPRIDE) SUSPENSION [Suspect]
     Indication: GASTROOESOPHAGEAL REFLUX DISEASE
     Dosage: SEE IMAGE
     Route: 048
     Dates: start: 29931117
  4. RANITIDINE HCL (RANTIDINE HYDROCHLORIDE) [Concomitant]
  5. LANSOPRAZOLE [Concomitant]

REACTIONS (1)
  - ELECTROCARDIOGRAM QT CORRECTED INTERVAL PROLONGED [None]
